FAERS Safety Report 11327147 (Version 1)
Quarter: 2015Q3

REPORT INFORMATION
  Report Type: Spontaneous
  Country: US (occurrence: None)
  Receive Date: 20150730
  Receipt Date: 20150730
  Transmission Date: 20151125
  Serious: No
  Sender: FDA-Public Use
  Company Number: None

PATIENT
  Age: 58 Year
  Sex: Female

DRUGS (1)
  1. FORTEO [Suspect]
     Active Substance: TERIPARATIDE
     Indication: OSTEOPOROSIS
     Dosage: FORTEO 250 MCG/ML EVERY DAY SUBCUTANEOUS
     Route: 058
     Dates: start: 20141208, end: 20150724

REACTIONS (2)
  - Abasia [None]
  - Arthralgia [None]

NARRATIVE: CASE EVENT DATE: 20150724
